FAERS Safety Report 18988186 (Version 1)
Quarter: 2021Q1

REPORT INFORMATION
  Report Type: Spontaneous
  Country: US (occurrence: US)
  Receive Date: 20210309
  Receipt Date: 20210309
  Transmission Date: 20210420
  Serious: Yes (Hospitalization, Other)
  Sender: FDA-Public Use
  Company Number: US-AMERICAN REGENT INC-2020002673

PATIENT
  Age: 70 Year
  Sex: Female
  Weight: 71.5 kg

DRUGS (4)
  1. VENOFER [Suspect]
     Active Substance: IRON SUCROSE
     Indication: IRON DEFICIENCY
     Dosage: 100 MG EVERY TREATMENT
     Dates: start: 20201022, end: 20201022
  2. MIRCERA [Suspect]
     Active Substance: METHOXY POLYETHYLENE GLYCOL-EPOETIN BETA
     Indication: NEPHROGENIC ANAEMIA
     Dosage: 30 MICROGRAM, EVERY 2 WEEKS
     Dates: start: 20201027, end: 20201027
  3. VENOFER [Suspect]
     Active Substance: IRON SUCROSE
     Indication: IRON DEFICIENCY ANAEMIA
     Dosage: 100 MG EVERY TREATMENT
     Dates: start: 20201027, end: 20201027
  4. HEPARIN SODIUM. [Concomitant]
     Active Substance: HEPARIN SODIUM
     Indication: PREMEDICATION
     Dosage: 1000 UNITS
     Dates: start: 20201027, end: 20201027

REACTIONS (2)
  - Asthma [Unknown]
  - Hypersensitivity [Recovered/Resolved]

NARRATIVE: CASE EVENT DATE: 20201022
